FAERS Safety Report 7993728-8 (Version None)
Quarter: 2011Q4

REPORT INFORMATION
  Report Type: 
  Country: None (occurrence: None)
  Receive Date: 20111220
  Receipt Date: 20111208
  Transmission Date: 20120403
  Serious: Yes (Hospitalization)
  Sender: FDA-Public Use
  Company Number: JP-BRISTOL-MYERS SQUIBB COMPANY-15938152

PATIENT
  Age: 60 Year
  Sex: Female
  Weight: 78 kg

DRUGS (16)
  1. ORENCIA [Suspect]
     Indication: RHEUMATOID ARTHRITIS
     Dosage: 23MAR11: 500MG
     Route: 041
     Dates: start: 20110309, end: 20110406
  2. BREDININ [Suspect]
     Dates: start: 20100419, end: 20110520
  3. RHEUMATREX [Suspect]
     Indication: RHEUMATOID ARTHRITIS
     Dates: start: 20101124, end: 20110520
  4. ALDACTONE [Concomitant]
  5. ISONIAZID [Suspect]
     Indication: TUBERCULOSIS
     Dates: start: 20100331, end: 20110519
  6. URSO 250 [Concomitant]
  7. PREDNISOLONE [Concomitant]
  8. TOCILIZUMAB [Concomitant]
  9. ACTONEL [Suspect]
     Indication: OSTEOPOROSIS
  10. ACTARIT [Suspect]
     Indication: RHEUMATOID ARTHRITIS
  11. PREDNISOLONE [Concomitant]
     Indication: RHEUMATOID ARTHRITIS
     Route: 048
     Dates: start: 20110810
  12. LAXOBERON [Concomitant]
  13. FOLIC ACID [Concomitant]
     Indication: PROPHYLAXIS
  14. RABEPRAZOLE SODIUM [Concomitant]
  15. FOIPAN [Concomitant]
  16. NIZORAL [Concomitant]

REACTIONS (1)
  - LIVER DISORDER [None]
